FAERS Safety Report 7062306-X (Version None)
Quarter: 2010Q4

REPORT INFORMATION
  Report Type: 
  Country: None (occurrence: None)
  Receive Date: 20101026
  Receipt Date: 20101012
  Transmission Date: 20110411
  Serious: Yes (Death)
  Sender: FDA-Public Use
  Company Number: US-AMGEN LTD.-QUU430628

PATIENT

DRUGS (2)
  1. NPLATE [Suspect]
     Indication: IDIOPATHIC THROMBOCYTOPENIC PURPURA
     Dosage: 2 A?G/KG, UNK
     Dates: start: 20090123, end: 20100622
  2. IMMUNOGLOBULIN HUMAN ANTI-RH [Concomitant]

REACTIONS (1)
  - COMPLETED SUICIDE [None]
